FAERS Safety Report 15609856 (Version 1)
Quarter: 2018Q4

REPORT INFORMATION
  Report Type: Spontaneous
  Country: CA (occurrence: CA)
  Receive Date: 20181113
  Receipt Date: 20181113
  Transmission Date: 20190205
  Serious: Yes (Disabling, Other)
  Sender: FDA-Public Use
  Company Number: CA-CONCORDIA PHARMACEUTICALS INC.-GSH201811-003897

PATIENT
  Age: 12 Year
  Sex: Female
  Weight: 41 kg

DRUGS (12)
  1. METHOTREXATE. [Suspect]
     Active Substance: METHOTREXATE
     Indication: POLYARTHRITIS
     Route: 058
     Dates: start: 20080918, end: 2013
  2. TOCILIZUMAB. [Suspect]
     Active Substance: TOCILIZUMAB
     Indication: POLYARTHRITIS
  3. PLAQUENIL [Suspect]
     Active Substance: HYDROXYCHLOROQUINE SULFATE
     Indication: POLYARTHRITIS
     Route: 065
  4. ABATACEPT [Suspect]
     Active Substance: ABATACEPT
     Indication: JUVENILE IDIOPATHIC ARTHRITIS
     Route: 065
  5. ADALIMUMAB [Suspect]
     Active Substance: ADALIMUMAB
     Indication: JUVENILE IDIOPATHIC ARTHRITIS
     Route: 058
     Dates: start: 201105, end: 201406
  6. INFLIXIMAB [Suspect]
     Active Substance: INFLIXIMAB
     Indication: JUVENILE IDIOPATHIC ARTHRITIS
     Route: 065
     Dates: start: 201408
  7. LEFLUNOMIDE. [Suspect]
     Active Substance: LEFLUNOMIDE
     Indication: POLYARTHRITIS
     Route: 048
  8. ABATACEPT [Suspect]
     Active Substance: ABATACEPT
     Indication: POLYARTHRITIS
  9. TOCILIZUMAB. [Suspect]
     Active Substance: TOCILIZUMAB
     Indication: JUVENILE IDIOPATHIC ARTHRITIS
     Route: 065
  10. RITUXIMAB. [Suspect]
     Active Substance: RITUXIMAB
     Indication: JUVENILE IDIOPATHIC ARTHRITIS
     Route: 042
     Dates: start: 201105, end: 201105
  11. SULFASALAZINE. [Suspect]
     Active Substance: SULFASALAZINE
     Indication: POLYARTHRITIS
     Route: 065
  12. ETANERCEPT [Suspect]
     Active Substance: ETANERCEPT
     Indication: JUVENILE IDIOPATHIC ARTHRITIS
     Route: 065
     Dates: start: 20090102, end: 20100209

REACTIONS (27)
  - Physical disability [Not Recovered/Not Resolved]
  - Infusion site reaction [Unknown]
  - Juvenile idiopathic arthritis [Unknown]
  - Deformity [Unknown]
  - Vascular access complication [Unknown]
  - Drug ineffective [Unknown]
  - Contraindicated product administered [Unknown]
  - Pain [Unknown]
  - Mean platelet volume decreased [Unknown]
  - Arthropathy [Unknown]
  - General physical health deterioration [Not Recovered/Not Resolved]
  - Mean cell haemoglobin decreased [Unknown]
  - White blood cell count increased [Unknown]
  - Disability [Unknown]
  - C-reactive protein increased [Unknown]
  - Infusion related reaction [Unknown]
  - Joint destruction [Unknown]
  - Monocyte count increased [Unknown]
  - Platelet count increased [Unknown]
  - Red cell distribution width decreased [Unknown]
  - Musculoskeletal deformity [Not Recovered/Not Resolved]
  - Treatment failure [Unknown]
  - Osteoarthritis [Not Recovered/Not Resolved]
  - Arthritis [Unknown]
  - Red blood cell sedimentation rate [Unknown]
  - Joint effusion [Unknown]
  - Mean cell volume decreased [Unknown]
